FAERS Safety Report 14474644 (Version 1)
Quarter: 2018Q1

REPORT INFORMATION
  Report Type: Spontaneous
  Country: US (occurrence: US)
  Receive Date: 20180131
  Receipt Date: 20180131
  Transmission Date: 20180509
  Serious: No
  Sender: FDA-Public Use
  Company Number: None

PATIENT
  Sex: Female
  Weight: 68.04 kg

DRUGS (1)
  1. NEXPLANON [Suspect]
     Active Substance: ETONOGESTREL
     Indication: CONTRACEPTION
     Dosage: 1 IMPLANT ONCE EVERY 3 YEARS
     Dates: start: 20170228

REACTIONS (4)
  - Vaginal discharge [None]
  - Depression [None]
  - Acne [None]
  - Vaginal haemorrhage [None]

NARRATIVE: CASE EVENT DATE: 20170602
